FAERS Safety Report 7472044-7 (Version None)
Quarter: 2011Q2

REPORT INFORMATION
  Report Type: 
  Country: None (occurrence: None)
  Receive Date: 20110511
  Receipt Date: 20101101
  Transmission Date: 20111010
  Serious: No
  Sender: FDA-Public Use
  Company Number: A0889956A

PATIENT
  Age: 44 Year
  Sex: Female

DRUGS (5)
  1. TYKERB [Suspect]
     Indication: BREAST CANCER
     Dosage: 250MG FIVE TIMES PER DAY
     Route: 048
     Dates: start: 20050101
  2. KEPPRA [Concomitant]
  3. INFLUENZA VACCINE [Suspect]
     Indication: PROPHYLAXIS
     Route: 065
     Dates: start: 20101001, end: 20101001
  4. PROTONIX [Concomitant]
  5. VITAMIN B-12 [Concomitant]

REACTIONS (1)
  - INFLUENZA LIKE ILLNESS [None]
